FAERS Safety Report 15857180 (Version 2)
Quarter: 2019Q2

REPORT INFORMATION
  Report Type: Report from Study
  Country: DE (occurrence: DE)
  Receive Date: 20190123
  Receipt Date: 20190610
  Transmission Date: 20190711
  Serious: Yes (Hospitalization)
  Sender: FDA-Public Use
  Company Number: DE-BIOGEN-2018BI00587673

PATIENT
  Age: 50 Year
  Sex: Male

DRUGS (2)
  1. PLEGRIDY [Suspect]
     Active Substance: PEGINTERFERON BETA-1A
     Indication: MULTIPLE SCLEROSIS
     Route: 050
     Dates: start: 20171102, end: 2018
  2. PLEGRIDY [Suspect]
     Active Substance: PEGINTERFERON BETA-1A
     Route: 050
     Dates: start: 2018

REACTIONS (4)
  - Muscle spasms [Recovered/Resolved]
  - Tibia fracture [Recovered/Resolved]
  - Muscle spasticity [Recovered/Resolved]
  - Post procedural sepsis [Recovered/Resolved]

NARRATIVE: CASE EVENT DATE: 201803
